FAERS Safety Report 24834356 (Version 2)
Quarter: 2025Q1

REPORT INFORMATION
  Report Type: Spontaneous
  Country: US (occurrence: US)
  Receive Date: 20250113
  Receipt Date: 20250123
  Transmission Date: 20250409
  Serious: No
  Sender: ROCHE
  Company Number: US-ROCHE-10000165044

PATIENT
  Age: 61 Year
  Sex: Male
  Weight: 76.66 kg

DRUGS (13)
  1. XOLAIR [Suspect]
     Active Substance: OMALIZUMAB
     Indication: Asthma
     Route: 065
     Dates: start: 2018
  2. XOLAIR [Suspect]
     Active Substance: OMALIZUMAB
     Route: 065
     Dates: start: 20241218
  3. XOLAIR [Suspect]
     Active Substance: OMALIZUMAB
     Dosage: 150MG
     Route: 058
     Dates: start: 20230406
  4. ADVAIR DISKUS [Concomitant]
     Active Substance: FLUTICASONE PROPIONATE\SALMETEROL XINAFOATE
     Dosage: DOSE: (500MCG-50 MCG)?POWDER FOR INHALATION
     Dates: start: 20211116
  5. ALLEGRA ALLERGY [Concomitant]
     Active Substance: FEXOFENADINE HYDROCHLORIDE
     Dosage: 1 TABLET
     Dates: start: 20170410
  6. AMLODIPINE [Concomitant]
     Active Substance: AMLODIPINE BESYLATE
     Dosage: 1 TABLET
     Dates: start: 20240918
  7. AZELASTINE [Concomitant]
     Active Substance: AZELASTINE
     Dosage: DOSE: 137MCG (0.1%), NASAL SPRAY?TWO SPRAYS TWICE A DAY
     Dates: start: 20200420
  8. DEXILANT [Concomitant]
     Active Substance: DEXLANSOPRAZOLE
     Dosage: 60 MG, CAPSULE DELAY RELEASED
     Dates: start: 20111111
  9. EPINEPHRINE [Concomitant]
     Active Substance: EPINEPHRINE
     Dates: start: 20180125
  10. GAMUNEX-C [Concomitant]
     Active Substance: HUMAN IMMUNOGLOBULIN G
     Dosage: 10 GRAM/100ML (10%)
     Dates: start: 20220422
  11. PROVENTIL HFA [Concomitant]
     Active Substance: ALBUTEROL SULFATE
     Dosage: 90MCG/ACTUATION?AEROSOL INHALER?2 PUFFS
     Dates: start: 20120309
  12. SINGULAIR [Concomitant]
     Active Substance: MONTELUKAST SODIUM
     Dosage: STRENGTH:10 MG
  13. STERILE WATER FOR INJECTION [Concomitant]
     Active Substance: WATER
     Dates: start: 20220823

REACTIONS (4)
  - Device defective [Unknown]
  - No adverse event [Unknown]
  - Wrong technique in product usage process [Unknown]
  - Product preparation issue [Unknown]

NARRATIVE: CASE EVENT DATE: 20241218
